FAERS Safety Report 24163407 (Version 1)
Quarter: 2024Q3

REPORT INFORMATION
  Report Type: Spontaneous
  Country: US (occurrence: US)
  Receive Date: 20240801
  Receipt Date: 20240801
  Transmission Date: 20241017
  Serious: No
  Sender: ABBVIE
  Company Number: US-ABBVIE-5857103

PATIENT
  Age: 55 Year
  Sex: Female

DRUGS (2)
  1. BOTOX COSMETIC [Suspect]
     Active Substance: ONABOTULINUMTOXINA
     Indication: Product used for unknown indication
     Route: 065
     Dates: start: 20240629, end: 20240629
  2. LISINOPRIL [Suspect]
     Active Substance: LISINOPRIL
     Indication: Blood pressure measurement
     Dosage: 20 MG
     Route: 065

REACTIONS (6)
  - Sinusitis [Unknown]
  - Peripheral swelling [Unknown]
  - Constipation [Unknown]
  - Swelling face [Unknown]
  - Headache [Unknown]
  - Urticaria [Recovered/Resolved]

NARRATIVE: CASE EVENT DATE: 20240101
